FAERS Safety Report 11922822 (Version 2)
Quarter: 2016Q1

REPORT INFORMATION
  Report Type: Spontaneous
  Country: FR (occurrence: FR)
  Receive Date: 20160116
  Receipt Date: 20160218
  Transmission Date: 20160526
  Serious: Yes (Hospitalization)
  Sender: FDA-Public Use
  Company Number: FR-AMGEN-FRASP2016004367

PATIENT
  Age: 50 Year
  Sex: Male
  Weight: 110 kg

DRUGS (3)
  1. IMETH [Concomitant]
     Active Substance: METHOTREXATE SODIUM
     Indication: RHEUMATOID ARTHRITIS
     Dosage: 10 MG, QWK
     Route: 048
     Dates: start: 200809
  2. CHAMPIX [Concomitant]
     Active Substance: VARENICLINE TARTRATE
     Dosage: 1 MG, IN THE MORNING AND IN THE EVENING
  3. ENBREL [Suspect]
     Active Substance: ETANERCEPT
     Indication: RHEUMATOID ARTHRITIS
     Dosage: 50 MG, QWK
     Route: 058
     Dates: start: 200801, end: 20150917

REACTIONS (1)
  - Retroperitoneal fibrosis [Recovering/Resolving]

NARRATIVE: CASE EVENT DATE: 20150123
